FAERS Safety Report 19395841 (Version 11)
Quarter: 2023Q2

REPORT INFORMATION
  Report Type: Report from Study
  Country: US (occurrence: US)
  Receive Date: 20210609
  Receipt Date: 20230619
  Transmission Date: 20230721
  Serious: Yes (Other)
  Sender: FDA-Public Use
  Company Number: US-SHIRE-US202013503

PATIENT
  Age: 22 Year
  Sex: Female

DRUGS (4)
  1. HUMAN IMMUNOGLOBULIN G [Suspect]
     Active Substance: HUMAN IMMUNOGLOBULIN G
     Indication: Primary immunodeficiency syndrome
     Dosage: 11 GRAM, 1/WEEK
     Route: 065
  2. GAMMAGARD LIQUID [Suspect]
     Active Substance: HUMAN IMMUNOGLOBULIN G
     Indication: Primary immunodeficiency syndrome
     Dosage: UNK
     Route: 042
  3. LEVOFLOXACIN [Concomitant]
     Active Substance: LEVOFLOXACIN
     Indication: Productive cough
     Dosage: UNK
     Route: 065
  4. LEVOFLOXACIN [Concomitant]
     Active Substance: LEVOFLOXACIN
     Indication: Sinusitis

REACTIONS (31)
  - Bipolar disorder [Unknown]
  - Adenoidal disorder [Unknown]
  - Dehydration [Unknown]
  - Blood immunoglobulin G decreased [Unknown]
  - Sinusitis [Recovered/Resolved]
  - Stress at work [Unknown]
  - Speech disorder [Unknown]
  - Productive cough [Recovering/Resolving]
  - Illness [Unknown]
  - COVID-19 [Recovered/Resolved]
  - Temperature intolerance [Unknown]
  - Drug ineffective [Unknown]
  - Post-traumatic stress disorder [Unknown]
  - Sexual abuse [Unknown]
  - Metapneumovirus infection [Unknown]
  - Autonomic nervous system imbalance [Unknown]
  - Sinus disorder [Unknown]
  - Treatment noncompliance [Unknown]
  - Infectious mononucleosis [Unknown]
  - Post-acute COVID-19 syndrome [Not Recovered/Not Resolved]
  - Injection site pain [Unknown]
  - Anxiety [Unknown]
  - Fatigue [Not Recovered/Not Resolved]
  - Headache [Unknown]
  - Abdominal pain [Unknown]
  - Chest pain [Unknown]
  - Lymphadenopathy [Unknown]
  - Pyrexia [Unknown]
  - Epistaxis [Unknown]
  - Asthma [Unknown]
  - Needle issue [Unknown]

NARRATIVE: CASE EVENT DATE: 20220401
